FAERS Safety Report 4382646-2 (Version None)
Quarter: 2004Q2

REPORT INFORMATION
  Report Type: 
  Country: None (occurrence: None)
  Receive Date: 20040622
  Receipt Date: 20040527
  Transmission Date: 20050107
  Serious: Yes (Other)
  Sender: FDA-Public Use
  Company Number: GB-GLAXOSMITHKLINE-B0334065A

PATIENT
  Age: 51 Year
  Sex: Male
  Weight: 74 kg

DRUGS (5)
  1. MALARONE [Suspect]
     Indication: MALARIA PROPHYLAXIS
     Dates: start: 20040201
  2. DTP (A OR W NOT KNOWN) [Concomitant]
  3. YELLOW FEVER [Concomitant]
  4. HEPATITIS A VACCINE [Concomitant]
  5. TYPHOID VACCINE [Concomitant]

REACTIONS (3)
  - FATIGUE [None]
  - LETHARGY [None]
  - NEUTROPENIA [None]
